FAERS Safety Report 18766681 (Version 1)
Quarter: 2021Q1

REPORT INFORMATION
  Report Type: Spontaneous
  Country: US (occurrence: US)
  Receive Date: 20210121
  Receipt Date: 20210121
  Transmission Date: 20210419
  Serious: No
  Sender: FDA-Public Use
  Company Number: US-BAUSCH-BL-2021-001644

PATIENT
  Age: 68 Year
  Sex: Female
  Weight: 42.68 kg

DRUGS (2)
  1. BEPREVE [Suspect]
     Active Substance: BEPOTASTINE BESILATE
     Indication: EYE PRURITUS
  2. BEPREVE [Suspect]
     Active Substance: BEPOTASTINE BESILATE
     Indication: DRY EYE
     Dosage: ONE DROP INTO EACH EYE TWICE DAILY
     Route: 047
     Dates: start: 202012, end: 20210102

REACTIONS (1)
  - Headache [Recovered/Resolved]

NARRATIVE: CASE EVENT DATE: 202012
